FAERS Safety Report 9085013 (Version 7)
Quarter: 2014Q3

REPORT INFORMATION
  Report Type: Report from Study
  Country: CA (occurrence: CA)
  Receive Date: 20130130
  Receipt Date: 20140912
  Transmission Date: 20150326
  Serious: Yes (Hospitalization, Other)
  Sender: FDA-Public Use
  Company Number: PHHY2010CA28974

PATIENT
  Age: 82 Year
  Sex: Male

DRUGS (7)
  1. ASAPHEN [Concomitant]
     Active Substance: ASPIRIN
  2. TASIGNA [Suspect]
     Active Substance: NILOTINIB
     Dosage: 400 MG, BID
     Route: 048
     Dates: start: 2010
  3. RAMIPRIL. [Concomitant]
     Active Substance: RAMIPRIL
  4. TASIGNA [Suspect]
     Active Substance: NILOTINIB
     Indication: CHRONIC MYELOID LEUKAEMIA
     Dosage: 400 MG, BID
     Route: 048
     Dates: start: 20091020, end: 20100426
  5. ZOCOR [Concomitant]
     Active Substance: SIMVASTATIN
  6. PLAVIX [Concomitant]
     Active Substance: CLOPIDOGREL BISULFATE
  7. BISOPROLOL [Concomitant]
     Active Substance: BISOPROLOL

REACTIONS (11)
  - Lung infection [Unknown]
  - Pulmonary oedema [Unknown]
  - Asthenia [Unknown]
  - Glossodynia [Unknown]
  - Oral pain [Unknown]
  - Blood bilirubin unconjugated increased [Not Recovered/Not Resolved]
  - Saliva altered [Unknown]
  - Mouth ulceration [Unknown]
  - Bronchitis [Unknown]
  - Bilirubin conjugated increased [Not Recovered/Not Resolved]
  - Dyspepsia [Unknown]

NARRATIVE: CASE EVENT DATE: 201408
